FAERS Safety Report 18851704 (Version 1)
Quarter: 2021Q1

REPORT INFORMATION
  Report Type: Spontaneous
  Country: US (occurrence: US)
  Receive Date: 20210205
  Receipt Date: 20210205
  Transmission Date: 20210420
  Serious: Yes (Disabling, Other)
  Sender: FDA-Public Use
  Company Number: None

PATIENT
  Age: 6 Year
  Sex: Male
  Weight: 22.5 kg

DRUGS (5)
  1. MULTIVITAMIN [Concomitant]
     Active Substance: VITAMINS
  2. MELATONIN [Concomitant]
     Active Substance: MELATONIN
  3. VIMPAT [Suspect]
     Active Substance: LACOSAMIDE
     Indication: EPILEPSY
     Dosage: ?          QUANTITY:9 9 ML;?
     Route: 048
     Dates: start: 20190901
  4. ZYRTEC/BENEDRYL/EPI?PEN/TYLENOL PRN [Concomitant]
  5. CHILDRENS MULTIVITAMIN [Concomitant]

REACTIONS (7)
  - Obsessive-compulsive disorder [None]
  - Learning disorder [None]
  - Anxiety [None]
  - Suicidal ideation [None]
  - Aggression [None]
  - Panic attack [None]
  - Disturbance in attention [None]

NARRATIVE: CASE EVENT DATE: 20200901
